FAERS Safety Report 9839756 (Version 1)
Quarter: 2014Q1

REPORT INFORMATION
  Report Type: Spontaneous
  Country: US (occurrence: US)
  Receive Date: 20140124
  Receipt Date: 20140124
  Transmission Date: 20141002
  Serious: No
  Sender: FDA-Public Use
  Company Number: US-BIOGENIDEC-2014BI005697

PATIENT
  Sex: Female

DRUGS (8)
  1. TECFIDERA [Suspect]
     Indication: MULTIPLE SCLEROSIS
     Route: 048
     Dates: start: 20131202
  2. BACLOFEN [Concomitant]
  3. PRAMIPEXOLE [Concomitant]
  4. GABAPENTIN [Concomitant]
  5. TRAMADOL [Concomitant]
  6. CITALOPRAM [Concomitant]
  7. POTASSIUM [Concomitant]
  8. ECOTRIN [Concomitant]

REACTIONS (2)
  - Pain in extremity [Unknown]
  - Gastric disorder [Unknown]
